FAERS Safety Report 20445689 (Version 1)
Quarter: 2022Q1

REPORT INFORMATION
  Report Type: Spontaneous
  Country: US (occurrence: US)
  Receive Date: 20220208
  Receipt Date: 20220208
  Transmission Date: 20220423
  Serious: No
  Sender: FDA-Public Use
  Company Number: US-GALDERMA-US2021015605

PATIENT

DRUGS (1)
  1. SOOLANTRA [Suspect]
     Active Substance: IVERMECTIN
     Indication: Rosacea
     Dosage: 1 DOSAGE FORM, QD, ONCE A DAY AT NIGHT, DAILY
     Route: 061
     Dates: start: 2019

REACTIONS (2)
  - Expired product administered [Recovered/Resolved]
  - Intentional product misuse [Recovered/Resolved]
